FAERS Safety Report 4707490-5 (Version None)
Quarter: 2005Q3

REPORT INFORMATION
  Report Type: 
  Country: None (occurrence: None)
  Receive Date: 20050706
  Receipt Date: 20050628
  Transmission Date: 20060218
  Serious: Yes (Hospitalization)
  Sender: FDA-Public Use
  Company Number: JP-GLAXOSMITHKLINE-B0386455A

PATIENT
  Age: 80 Year
  Sex: Female

DRUGS (10)
  1. PAXIL [Suspect]
     Indication: DEPRESSION
     Dosage: 10MG PER DAY
     Route: 048
     Dates: start: 20050506, end: 20050515
  2. LASIX [Concomitant]
     Dosage: 80MG PER DAY
     Route: 048
  3. ALDACTONE [Concomitant]
     Dosage: 25MG PER DAY
     Route: 048
  4. DIGOSIN [Concomitant]
     Dosage: .125MG PER DAY
     Route: 048
  5. TAKEPRON [Concomitant]
     Dosage: 15MG PER DAY
     Route: 048
  6. HERBESSER [Concomitant]
     Dosage: 30MG TWICE PER DAY
     Route: 048
  7. ERISPAN [Concomitant]
     Dosage: .25MG PER DAY
     Route: 048
  8. WARFARIN [Concomitant]
     Dosage: 1.5MG PER DAY
     Route: 048
  9. DEPAS [Concomitant]
     Dosage: .5MG THREE TIMES PER DAY
     Route: 048
  10. LAXOBERON [Concomitant]
     Route: 048

REACTIONS (3)
  - BLOOD UREA INCREASED [None]
  - HAEMOGLOBIN INCREASED [None]
  - MALAISE [None]
